FAERS Safety Report 20877141 (Version 2)
Quarter: 2022Q2

REPORT INFORMATION
  Report Type: Spontaneous
  Country: US (occurrence: US)
  Receive Date: 20220526
  Receipt Date: 20220606
  Transmission Date: 20220720
  Serious: No
  Sender: FDA-Public Use
  Company Number: US-VERTEX PHARMACEUTICALS-2022-004097

PATIENT
  Age: 71 Year
  Sex: Female

DRUGS (10)
  1. TRIKAFTA [Suspect]
     Active Substance: ELEXACAFTOR\IVACAFTOR\TEZACAFTOR
     Indication: Cystic fibrosis
     Dosage: (2 TABS) AM AND (1 TAB) PM
     Route: 048
     Dates: start: 20220228, end: 2022
  2. TRIKAFTA [Suspect]
     Active Substance: ELEXACAFTOR\IVACAFTOR\TEZACAFTOR
     Dosage: REDUCED DOSE
     Route: 048
     Dates: start: 20220302, end: 2022
  3. TRIKAFTA [Suspect]
     Active Substance: ELEXACAFTOR\IVACAFTOR\TEZACAFTOR
     Dosage: INCREASED TO FULL DOSE
     Route: 048
     Dates: start: 20220508, end: 20220516
  4. AMITRIPTYLINE [Concomitant]
     Active Substance: AMITRIPTYLINE
  5. CALCIPOTRIENE [Concomitant]
     Active Substance: CALCIPOTRIENE
  6. CALCIUM [Concomitant]
     Active Substance: CALCIUM
  7. MUCINEX [Concomitant]
     Active Substance: GUAIFENESIN
  8. SODIUM CHLORIDE [Concomitant]
     Active Substance: SODIUM CHLORIDE
  9. PROLIA [Concomitant]
     Active Substance: DENOSUMAB
  10. CALCIUM\VITAMIN D [Concomitant]
     Active Substance: CALCIUM\VITAMIN D

REACTIONS (8)
  - Rash pruritic [Recovering/Resolving]
  - Rash papular [Recovering/Resolving]
  - Headache [Not Recovered/Not Resolved]
  - Diarrhoea [Recovered/Resolved]
  - Dizziness postural [Not Recovered/Not Resolved]
  - Infective pulmonary exacerbation of cystic fibrosis [Unknown]
  - Chest discomfort [Not Recovered/Not Resolved]
  - Blood pressure diastolic decreased [Not Recovered/Not Resolved]

NARRATIVE: CASE EVENT DATE: 20220309
